FAERS Safety Report 4860457-9 (Version None)
Quarter: 2005Q4

REPORT INFORMATION
  Report Type: 
  Country: None (occurrence: None)
  Receive Date: 20051219
  Receipt Date: 20051209
  Transmission Date: 20060501
  Serious: Yes (Other)
  Sender: FDA-Public Use
  Company Number: CA-BRISTOL-MYERS SQUIBB COMPANY-13217484

PATIENT
  Age: 85 Year
  Sex: Male

DRUGS (10)
  1. TEQUIN [Suspect]
     Route: 048
  2. ALDACTAZIDE [Concomitant]
     Route: 048
  3. ASPIRIN [Concomitant]
     Route: 048
  4. AZATHIOPRINE [Concomitant]
     Route: 048
  5. GLYBURIDE [Concomitant]
     Route: 048
  6. METFORMIN HCL [Concomitant]
     Route: 048
  7. MULTIVITAMIN WITH MINERALS [Concomitant]
     Route: 048
  8. NEXIUM [Concomitant]
  9. PREDNISONE [Concomitant]
     Route: 048
  10. RAMIPRIL [Concomitant]

REACTIONS (3)
  - DYSPNOEA [None]
  - HYPOGLYCAEMIA [None]
  - TREMOR [None]
